FAERS Safety Report 16282540 (Version 1)
Quarter: 2019Q2

REPORT INFORMATION
  Report Type: Spontaneous
  Country: HR (occurrence: HR)
  Receive Date: 20190507
  Receipt Date: 20190507
  Transmission Date: 20190711
  Serious: Yes (Hospitalization, Other)
  Sender: FDA-Public Use
  Company Number: HR-BRISTOL-MYERS SQUIBB COMPANY-BMS-2019-043077

PATIENT
  Age: 69 Year
  Sex: Female
  Weight: 105 kg

DRUGS (3)
  1. ELIQUIS [Suspect]
     Active Substance: APIXABAN
     Indication: CEREBROVASCULAR ACCIDENT PROPHYLAXIS
     Dosage: 5MG; 2X1
     Route: 048
     Dates: start: 20171229, end: 20190301
  2. VALSACOMBI [Suspect]
     Active Substance: HYDROCHLOROTHIAZIDE\VALSARTAN
     Indication: ESSENTIAL HYPERTENSION
     Dosage: 1 DOSAGE FORM, QD
     Route: 048
  3. CORDARONE [Interacting]
     Active Substance: AMIODARONE HYDROCHLORIDE
     Indication: ATRIAL FIBRILLATION
     Dosage: 200 MILLIGRAM, QD
     Route: 048

REACTIONS (4)
  - Drug interaction [Unknown]
  - Cyanosis [Recovered/Resolved]
  - Oral mucosa haematoma [Recovering/Resolving]
  - Petechiae [Recovered/Resolved]

NARRATIVE: CASE EVENT DATE: 20171230
